FAERS Safety Report 5103728-3 (Version None)
Quarter: 2006Q3

REPORT INFORMATION
  Report Type: 
  Country: None (occurrence: None)
  Receive Date: 20060913
  Receipt Date: 20060906
  Transmission Date: 20061208
  Serious: Yes (Other)
  Sender: FDA-Public Use
  Company Number: US-JNJFOC-20060702495

PATIENT
  Sex: Female
  Weight: 53.43 kg

DRUGS (6)
  1. REMICADE [Suspect]
  2. REMICADE [Suspect]
     Indication: CROHN'S DISEASE
     Dosage: PREVIOUSLY RECEIVED APPROXIMATELY 5-6 YEARS AGO
  3. TYLENOL [Concomitant]
     Indication: PREMEDICATION
  4. BENADRYL [Concomitant]
     Indication: PREMEDICATION
  5. CIPRO [Concomitant]
  6. MOTRIN [Concomitant]

REACTIONS (11)
  - ARTHRALGIA [None]
  - HEADACHE [None]
  - JOINT STIFFNESS [None]
  - MUSCLE TIGHTNESS [None]
  - MUSCULOSKELETAL PAIN [None]
  - NECK PAIN [None]
  - PAIN [None]
  - PRURITUS [None]
  - PYREXIA [None]
  - RASH [None]
  - URTICARIA [None]
